FAERS Safety Report 4791313-2 (Version None)
Quarter: 2005Q4

REPORT INFORMATION
  Report Type: 
  Country: None (occurrence: None)
  Receive Date: 20051007
  Receipt Date: 20050926
  Transmission Date: 20060501
  Serious: Yes (Other)
  Sender: FDA-Public Use
  Company Number: SE-JNJFOC-20050906205

PATIENT
  Sex: Female

DRUGS (2)
  1. REMICADE [Suspect]
     Dosage: LAST INFUSION
     Route: 042
  2. REMICADE [Suspect]
     Indication: CROHN'S DISEASE
     Route: 042

REACTIONS (9)
  - ASTHMA [None]
  - BLOOD PRESSURE DECREASED [None]
  - COUGH [None]
  - DIZZINESS [None]
  - EYE DISORDER [None]
  - HYPERSENSITIVITY [None]
  - INFUSION RELATED REACTION [None]
  - PHARYNGEAL OEDEMA [None]
  - SINUSITIS [None]
